FAERS Safety Report 8812025 (Version 2)
Quarter: 2013Q1

REPORT INFORMATION
  Report Type: Spontaneous
  Country: IT (occurrence: IT)
  Receive Date: 20120927
  Receipt Date: 20130102
  Transmission Date: 20140127
  Serious: Yes (Hospitalization)
  Sender: FDA-Public Use
  Company Number: IT-ASTRAZENECA-2012SE73185

PATIENT
  Age: 68 Year
  Sex: Female

DRUGS (4)
  1. SEROQUEL [Suspect]
     Indication: INTENTIONAL OVERDOSE
     Dosage: 600 MG, (100 MG X 6 TABLETS)
     Route: 048
     Dates: start: 20120910, end: 20120910
  2. STILNOX [Suspect]
     Indication: INTENTIONAL OVERDOSE
     Dosage: 150 MG, (10 MG X 15 TABLETS)
     Route: 048
     Dates: start: 20120910, end: 20120910
  3. ENTUMIN [Suspect]
     Indication: INTENTIONAL OVERDOSE
     Dosage: 400 MG, (40 MG X 10 TABLETS)
     Route: 048
     Dates: start: 20120910, end: 20120910
  4. REMERON [Concomitant]
     Indication: DEPRESSION
     Route: 048

REACTIONS (3)
  - Intentional overdose [Recovering/Resolving]
  - Sopor [Recovering/Resolving]
  - Suicidal behaviour [Recovering/Resolving]
